FAERS Safety Report 4359084-1 (Version None)
Quarter: 2004Q2

REPORT INFORMATION
  Report Type: 
  Country: None (occurrence: None)
  Receive Date: 20040517
  Receipt Date: 20040512
  Transmission Date: 20050107
  Serious: Yes (Life-Threatening, Hospitalization)
  Sender: FDA-Public Use
  Company Number: JP-MERCK-0405USA00992

PATIENT
  Age: 58 Year
  Sex: Male

DRUGS (3)
  1. [THERAPY UNSPECIFIED] [Concomitant]
     Indication: HYPERTENSION
     Route: 065
  2. COZAAR [Suspect]
     Indication: HYPERTENSION
     Route: 048
     Dates: end: 20040401
  3. COZAAR [Suspect]
     Route: 048
     Dates: start: 20040401

REACTIONS (1)
  - LIVER DISORDER [None]
